FAERS Safety Report 5972011-6 (Version None)
Quarter: 2008Q4

REPORT INFORMATION
  Report Type: 
  Country: None (occurrence: None)
  Receive Date: 20081125
  Receipt Date: 20081113
  Transmission Date: 20090506
  Serious: Yes (Disabling)
  Sender: FDA-Public Use
  Company Number: GXKR2006GB07232

PATIENT
  Age: 84 Year
  Sex: Male
  Weight: 80 kg

DRUGS (5)
  1. GABAPENTIN [Suspect]
     Indication: NEURALGIA
     Dosage: 600 MG, TID, ORAL
     Route: 048
     Dates: start: 20060606, end: 20060708
  2. ACETAMINOPHEN [Concomitant]
  3. SOFRAMYCIN (FRAMYCETIN SULFATE) UNKNOWN [Concomitant]
  4. TRAMADOL HCL [Concomitant]
  5. DICLOFENAC SODIUM [Concomitant]

REACTIONS (8)
  - ABASIA [None]
  - ARTHRALGIA [None]
  - ATAXIA [None]
  - CONDITION AGGRAVATED [None]
  - DIPLOPIA [None]
  - IMPAIRED DRIVING ABILITY [None]
  - MYALGIA [None]
  - PAIN [None]
